FAERS Safety Report 17080643 (Version 3)
Quarter: 2020Q1

REPORT INFORMATION
  Report Type: Report from Study
  Country: US (occurrence: US)
  Receive Date: 20191127
  Receipt Date: 20200205
  Transmission Date: 20200409
  Serious: Yes (Other)
  Sender: FDA-Public Use
  Company Number: US-ROCHE-2390512

PATIENT
  Age: 74 Year
  Sex: Female
  Weight: 75.36 kg

DRUGS (3)
  1. ACTEMRA [Suspect]
     Active Substance: TOCILIZUMAB
     Indication: RHEUMATOID ARTHRITIS
     Route: 058
     Dates: start: 20181002
  2. METHOTREXATE. [Concomitant]
     Active Substance: METHOTREXATE
  3. ACTEMRA [Suspect]
     Active Substance: TOCILIZUMAB
     Indication: RHEUMATOID ARTHRITIS
     Route: 058
     Dates: start: 20180128

REACTIONS (7)
  - Tendon injury [Not Recovered/Not Resolved]
  - Pain [Unknown]
  - Bone disorder [Unknown]
  - Spinal fracture [Unknown]
  - Malaise [Unknown]
  - Back disorder [Unknown]
  - Spondylitis [Unknown]

NARRATIVE: CASE EVENT DATE: 20190920
